FAERS Safety Report 16132951 (Version 1)
Quarter: 2019Q1

REPORT INFORMATION
  Report Type: Spontaneous
  Country: BR (occurrence: BR)
  Receive Date: 20190329
  Receipt Date: 20190329
  Transmission Date: 20190418
  Serious: Yes (Other)
  Sender: FDA-Public Use
  Company Number: BR-SA-2019SA082513

PATIENT
  Sex: Female
  Weight: 52.5 kg

DRUGS (1)
  1. FABRAZYME [Suspect]
     Active Substance: AGALSIDASE BETA
     Indication: FABRY^S DISEASE
     Dosage: 1 MG/KG, QOW
     Route: 041
     Dates: start: 201812

REACTIONS (4)
  - Impaired quality of life [Unknown]
  - Cardiomyopathy [Unknown]
  - Proteinuria [Unknown]
  - Neuralgia [Unknown]
